FAERS Safety Report 9095799 (Version 1)
Quarter: 2013Q1

REPORT INFORMATION
  Report Type: Spontaneous
  Country: DE (occurrence: DE)
  Receive Date: 20130220
  Receipt Date: 20130220
  Transmission Date: 20140127
  Serious: Yes (Death, Other)
  Sender: FDA-Public Use
  Company Number: DE-ACTELION-A-CH2013-79315

PATIENT
  Age: 64 Year
  Sex: Female

DRUGS (12)
  1. TRACLEER [Suspect]
     Indication: PULMONARY ARTERIAL HYPERTENSION
     Dosage: 125 MG, BID
     Route: 048
     Dates: start: 200901, end: 20130204
  2. TRACLEER [Suspect]
     Dosage: 62.5 MG, BID
     Route: 048
     Dates: start: 200812, end: 200901
  3. MARCUMAR [Concomitant]
  4. SPIRIVA [Concomitant]
  5. SYMBICORT [Concomitant]
  6. BISOPROLOL [Concomitant]
  7. LISINOPRIL [Concomitant]
  8. SIMVASTATIN [Concomitant]
  9. TORASEMID [Concomitant]
  10. OXYGEN [Concomitant]
  11. AZATHIOPRIN [Concomitant]
  12. OMEPRAZOL [Concomitant]

REACTIONS (2)
  - Death [Fatal]
  - Circulatory collapse [Unknown]
